FAERS Safety Report 16877768 (Version 1)
Quarter: 2019Q4

REPORT INFORMATION
  Report Type: Spontaneous
  Country: FR (occurrence: FR)
  Receive Date: 20191002
  Receipt Date: 20191002
  Transmission Date: 20200122
  Serious: Yes (Death, Hospitalization)
  Sender: FDA-Public Use
  Company Number: FR-GALDERMA-FR19060991

PATIENT
  Age: 74 Year
  Sex: Female
  Weight: 56 kg

DRUGS (3)
  1. CEFEPIME [Concomitant]
     Active Substance: CEFEPIME HYDROCHLORIDE
     Indication: INFECTION
     Dosage: 6 G
     Route: 042
     Dates: start: 20190204, end: 20190211
  2. METRONIDAZOLE. [Suspect]
     Active Substance: METRONIDAZOLE
     Indication: INFECTION
     Route: 061
     Dates: start: 20190204, end: 20190211
  3. CANCIDAS [Concomitant]
     Active Substance: CASPOFUNGIN ACETATE
     Indication: INFECTION
     Route: 065
     Dates: start: 20190204, end: 20190211

REACTIONS (3)
  - Depressed level of consciousness [Fatal]
  - Product use in unapproved indication [Recovered/Resolved]
  - Encephalopathy [Fatal]

NARRATIVE: CASE EVENT DATE: 20190204
